FAERS Safety Report 8776702 (Version 1)
Quarter: 2012Q4

REPORT INFORMATION
  Report Type: 
  Country: EC (occurrence: EC)
  Receive Date: 20120910
  Receipt Date: 20120910
  Transmission Date: 20130627
  Serious: Yes (Hospitalization, Disabling)
  Sender: FDA-Public Use
  Company Number: PHHY2012EC078162

PATIENT
  Age: 71 Year
  Sex: Female

DRUGS (1)
  1. EXFORGE HCT [Suspect]
     Dosage: 1 DF (vals 160 mg, amlo 10 mg, hydr 25 mg), daily
     Route: 048

REACTIONS (3)
  - Hip fracture [Recovering/Resolving]
  - Tibia fracture [Recovering/Resolving]
  - Joint dislocation [Recovering/Resolving]
